FAERS Safety Report 6463112-7 (Version None)
Quarter: 2009Q4

REPORT INFORMATION
  Report Type: 
  Country: None (occurrence: None)
  Receive Date: 20091106
  Receipt Date: 20091020
  Transmission Date: 20100525
  Serious: Yes (Other)
  Sender: FDA-Public Use
  Company Number: OMX-2009-00071

PATIENT
  Age: 56 Year
  Sex: Female
  Weight: 102.0593 kg

DRUGS (2)
  1. EVICEL [Suspect]
     Indication: ABDOMINAL HERNIA REPAIR
     Dates: start: 20090625, end: 20090625
  2. EVICEL [Suspect]
     Indication: SMALL INTESTINAL RESECTION
     Dates: start: 20090625, end: 20090625

REACTIONS (2)
  - MYCOBACTERIUM CHELONEI INFECTION [None]
  - WOUND INFECTION [None]
